FAERS Safety Report 8326924-0 (Version None)
Quarter: 2012Q2

REPORT INFORMATION
  Report Type: 
  Country: None (occurrence: None)
  Receive Date: 20120501
  Receipt Date: 20120430
  Transmission Date: 20120825
  Serious: Yes (Other)
  Sender: FDA-Public Use
  Company Number: CHPA2011US015588

PATIENT
  Age: 88 Year
  Sex: Male

DRUGS (4)
  1. LIDODERM [Concomitant]
     Dosage: 5 %, UNK
  2. VOLTAREN [Suspect]
     Indication: PAIN
     Dosage: UNK, BID
     Route: 061
     Dates: start: 20120301
  3. DRUG THERAPY NOS [Concomitant]
  4. VOLTAREN [Suspect]
     Indication: MUSCULOSKELETAL PAIN
     Dosage: 2 GRAMS, QID
     Route: 061
     Dates: start: 20111001

REACTIONS (5)
  - DRUG DEPENDENCE [None]
  - THERAPEUTIC RESPONSE UNEXPECTED [None]
  - UNDERDOSE [None]
  - DRUG ADMINISTERED AT INAPPROPRIATE SITE [None]
  - VISION BLURRED [None]
